FAERS Safety Report 16871831 (Version 4)
Quarter: 2019Q4

REPORT INFORMATION
  Report Type: Report from Study
  Country: CA (occurrence: CA)
  Receive Date: 20191001
  Receipt Date: 20191209
  Transmission Date: 20200122
  Serious: No
  Sender: FDA-Public Use
  Company Number: CA-BEH-2019107380

PATIENT
  Age: 7 Year
  Sex: Female

DRUGS (4)
  1. HAEMATE P [Suspect]
     Active Substance: ANTIHEMOPHILIC FACTOR HUMAN
     Indication: VON WILLEBRAND^S DISEASE
     Dosage: 2000 RC, QOD
     Route: 042
  2. HAEMATE P [Suspect]
     Active Substance: ANTIHEMOPHILIC FACTOR HUMAN
     Indication: VON WILLEBRAND^S DISEASE
     Dosage: 2000 RC, QOD
     Route: 042
  3. HAEMATE P [Suspect]
     Active Substance: ANTIHEMOPHILIC FACTOR HUMAN
     Dosage: UNK
     Route: 042
  4. HAEMATE P [Suspect]
     Active Substance: ANTIHEMOPHILIC FACTOR HUMAN
     Dosage: UNK
     Route: 042

REACTIONS (11)
  - Injection site bruising [Not Recovered/Not Resolved]
  - Psychological trauma [Unknown]
  - Injection site bruising [Recovered/Resolved with Sequelae]
  - Poor venous access [Not Recovered/Not Resolved]
  - Poor venous access [Not Recovered/Not Resolved]
  - Crying [Not Recovered/Not Resolved]
  - Patient uncooperative [Not Recovered/Not Resolved]
  - Incorrect dose administered [Unknown]
  - No adverse event [Unknown]
  - Patient uncooperative [Unknown]
  - Poor venous access [Unknown]

NARRATIVE: CASE EVENT DATE: 2019
